FAERS Safety Report 25648448 (Version 1)
Quarter: 2025Q3

REPORT INFORMATION
  Report Type: Spontaneous
  Country: US (occurrence: US)
  Receive Date: 20250806
  Receipt Date: 20250806
  Transmission Date: 20251021
  Serious: Yes (Hospitalization)
  Sender: MERCK SHARP & DOHME LLC
  Company Number: US-009507513-2314930

PATIENT
  Age: 64 Year
  Sex: Male

DRUGS (4)
  1. IMIPENEM [Suspect]
     Active Substance: IMIPENEM
     Route: 065
  2. OMADACYCLINE [Suspect]
     Active Substance: OMADACYCLINE
  3. AMIKACIN [Suspect]
     Active Substance: AMIKACIN
  4. AZITHROMYCIN [Suspect]
     Active Substance: AZITHROMYCIN

REACTIONS (1)
  - Mycobacterium abscessus infection [Unknown]

NARRATIVE: CASE EVENT DATE: 20250101
